FAERS Safety Report 4660317-2 (Version None)
Quarter: 2005Q2

REPORT INFORMATION
  Report Type: 
  Country: None (occurrence: None)
  Receive Date: 20050511
  Receipt Date: 20050511
  Transmission Date: 20051028
  Serious: Yes (Death, Life-Threatening, Hospitalization)
  Sender: FDA-Public Use
  Company Number: None

PATIENT
  Age: 61 Year
  Sex: Male
  Weight: 71.2147 kg

DRUGS (3)
  1. OXANDRIN [Suspect]
     Indication: WEIGHT CONTROL
     Dosage: 10MG  ONE PO BID
     Route: 048
     Dates: start: 20050128, end: 20050412
  2. PHENERGAN [Concomitant]
  3. LORTAB [Concomitant]

REACTIONS (4)
  - HYPOTENSION [None]
  - LUNG CANCER METASTATIC [None]
  - PNEUMONIA [None]
  - SEPSIS [None]
